FAERS Safety Report 10370567 (Version 1)
Quarter: 2014Q1

REPORT INFORMATION
  Report Type: Report from Study
  Country: US (occurrence: None)
  Receive Date: 20140306
  Receipt Date: 20140306
  Transmission Date: 20141002
  Serious: Yes (Hospitalization)
  Sender: FDA-Public Use
  Company Number: 163-21880-13093851

PATIENT
  Age: 53 Year
  Sex: Male
  Weight: 114 kg

DRUGS (16)
  1. REVLIMID (LENALIDOMIDE) (CAPSULES) [Suspect]
     Indication: PLASMA CELL MYELOMA
     Route: 048
     Dates: start: 20120630, end: 20130224
  2. DEXAMETHASONE (DEXAMETHASONE) [Suspect]
     Indication: PLASMA CELL MYELOMA
     Route: 048
     Dates: start: 20120630
  3. GLYBURIDE (GLIBENCLAMIDE) [Suspect]
     Indication: BLOOD GLUCOSE INCREASED
     Dates: start: 20130110, end: 20130322
  4. ACTOS (PIOGLITAZONE) [Concomitant]
  5. GLUCOPHAGE (METFORMIN HYDROCHLORIDE) [Concomitant]
  6. TAGAMET (CIMETIDINE) [Concomitant]
  7. LISINOPRIL (LISINOPRIL) [Concomitant]
  8. SIMVASTATIN (SIMVASTATIN) [Concomitant]
  9. ASPIRIN (ACETYLSALICYLIC ACID) [Concomitant]
  10. NORCO (VICODINE) [Concomitant]
  11. ZOMETA (ZOLEDRONIC ACID) [Concomitant]
  12. BAYER PLUS EXTRA STRENGTH (TRI-BUFFERED BUFFERIN) [Concomitant]
  13. CARVEDILOL (CARVEDILOL) [Concomitant]
  14. ACYCLOVIR (ACICLOVIR) [Concomitant]
  15. METFORMIN (METFORMIN) [Concomitant]
  16. VICODIN (VICODIN) [Concomitant]

REACTIONS (1)
  - Hypoglycaemia [None]
